FAERS Safety Report 23807352 (Version 5)
Quarter: 2024Q2

REPORT INFORMATION
  Report Type: Spontaneous
  Country: US (occurrence: US)
  Receive Date: 20240502
  Receipt Date: 20240621
  Transmission Date: 20240715
  Serious: Yes (Hospitalization)
  Sender: FDA-Public Use
  Company Number: US-IPSEN Group, Research and Development-2024-07329

PATIENT
  Age: 86 Year
  Sex: Female
  Weight: 90 kg

DRUGS (20)
  1. TAZVERIK [Suspect]
     Active Substance: TAZEMETOSTAT HYDROBROMIDE
     Indication: Follicular lymphoma
     Route: 048
     Dates: start: 20240212
  2. ALLOPURINOL [Concomitant]
     Active Substance: ALLOPURINOL
  3. BUMETANIDE [Concomitant]
     Active Substance: BUMETANIDE
  4. FARXIGA [Concomitant]
     Active Substance: DAPAGLIFLOZIN PROPANEDIOL
  5. FENOFIBRATE [Concomitant]
     Active Substance: FENOFIBRATE
  6. ALBUTEROL\IPRATROPIUM [Concomitant]
     Active Substance: ALBUTEROL\IPRATROPIUM
  7. KLONOPIN [Concomitant]
     Active Substance: CLONAZEPAM
  8. OLMESARTAN MEDOXOMIL [Concomitant]
     Active Substance: OLMESARTAN MEDOXOMIL
  9. PAROXETINE [Concomitant]
     Active Substance: PAROXETINE
  10. PRAMIPEXOLE [Concomitant]
     Active Substance: PRAMIPEXOLE\PRAMIPEXOLE DIHYDROCHLORIDE
  11. PREDNISONE [Concomitant]
     Active Substance: PREDNISONE
  12. RITUXAN [Concomitant]
     Active Substance: RITUXIMAB
     Route: 042
  13. TOPROL XL [Concomitant]
     Active Substance: METOPROLOL SUCCINATE
  14. TYLENOL [Concomitant]
     Active Substance: ACETAMINOPHEN
  15. VALACYCLOVIR [Concomitant]
     Active Substance: VALACYCLOVIR HYDROCHLORIDE
  16. XARELTO [Concomitant]
     Active Substance: RIVAROXABAN
  17. SPIRIVA [Concomitant]
     Active Substance: TIOTROPIUM BROMIDE MONOHYDRATE
  18. AMIODARONE [Concomitant]
     Active Substance: AMIODARONE
  19. ELIQUIS [Concomitant]
     Active Substance: APIXABAN
  20. LASIX [Concomitant]
     Active Substance: FUROSEMIDE

REACTIONS (5)
  - Chest discomfort [Unknown]
  - Heart rate increased [Unknown]
  - Hypotension [Not Recovered/Not Resolved]
  - Sinusitis [Not Recovered/Not Resolved]
  - Rhinorrhoea [Not Recovered/Not Resolved]

NARRATIVE: CASE EVENT DATE: 20240101
